FAERS Safety Report 4700927-7 (Version None)
Quarter: 2005Q2

REPORT INFORMATION
  Report Type: 
  Country: None (occurrence: None)
  Receive Date: 20050113
  Receipt Date: 20050113
  Transmission Date: 20051028
  Serious: Yes (Other)
  Sender: FDA-Public Use
  Company Number: None

PATIENT
  Age: 58 Year
  Sex: Female

DRUGS (2)
  1. ALPRAZOLAM [Suspect]
     Indication: ANXIETY
     Dosage: 0.25 MG PO TID  CHRONIC RX FOR YEARS
     Route: 048
  2. ALPRAZOLAM [Suspect]
     Indication: PANIC DISORDER
     Dosage: 0.25 MG PO TID  CHRONIC RX FOR YEARS
     Route: 048

REACTIONS (2)
  - PANIC ATTACK [None]
  - PHARMACEUTICAL PRODUCT COMPLAINT [None]
